FAERS Safety Report 7310512-9 (Version None)
Quarter: 2011Q1

REPORT INFORMATION
  Report Type: 
  Country: None (occurrence: None)
  Receive Date: 20110224
  Receipt Date: 20101115
  Transmission Date: 20110831
  Serious: No
  Sender: FDA-Public Use
  Company Number: US-BRISTOL-MYERS SQUIBB COMPANY-15387111

PATIENT
  Age: 73 Year
  Sex: Female

DRUGS (3)
  1. LOTREL [Concomitant]
  2. GLIPIZIDE [Suspect]
  3. METFORMIN HCL [Suspect]
     Dates: start: 20100101

REACTIONS (2)
  - PAIN [None]
  - BURNING SENSATION [None]
